FAERS Safety Report 6756438-0 (Version None)
Quarter: 2010Q2

REPORT INFORMATION
  Report Type: 
  Country: None (occurrence: None)
  Receive Date: 20100604
  Receipt Date: 20100528
  Transmission Date: 20101027
  Serious: Yes (Other)
  Sender: FDA-Public Use
  Company Number: A0862001A

PATIENT
  Age: 44 Year
  Sex: Female

DRUGS (15)
  1. LOVAZA [Suspect]
     Dosage: 4CAP PER DAY
     Route: 048
     Dates: start: 20090101
  2. LAMICTAL [Concomitant]
  3. CONCERTA [Concomitant]
  4. EFFEXOR XR [Concomitant]
  5. XYREM [Concomitant]
  6. CLONAZEPAM [Concomitant]
  7. LEVOXYL [Concomitant]
  8. CLONIDINE [Concomitant]
  9. LASIX [Concomitant]
  10. GLAUCOMA EYE DROPS (UNSPECIFIED) [Concomitant]
  11. LISINOPRIL [Concomitant]
  12. HUMALOG [Concomitant]
  13. LANTUS [Concomitant]
  14. METHOTREXATE [Concomitant]
  15. ARAVA [Concomitant]

REACTIONS (1)
  - CELLULITIS [None]
